FAERS Safety Report 4551069-5 (Version None)
Quarter: 2005Q1

REPORT INFORMATION
  Report Type: 
  Country: None (occurrence: None)
  Receive Date: 20050110
  Receipt Date: 20041228
  Transmission Date: 20050727
  Serious: Yes (Death, Hospitalization)
  Sender: FDA-Public Use
  Company Number: S04-USA-06015-01

PATIENT
  Age: 85 Year
  Sex: Male

DRUGS (10)
  1. NAMENDA [Suspect]
     Indication: HALLUCINATION
     Dosage: 5 MG QD PO
     Route: 048
     Dates: start: 20040614, end: 20040714
  2. TYLENOL [Concomitant]
  3. ASPIRIN [Concomitant]
  4. CARBIDOPA/LEVODOPA (CARBIDOPA) [Concomitant]
  5. PLAVIX [Concomitant]
  6. CELEXA [Concomitant]
  7. COLACE (DOCUSATE SODIUM) [Concomitant]
  8. IRON SULFATETHIAMIN COMPOUND TAB [Concomitant]
  9. LOPRESSOR [Concomitant]
  10. ZOCOR [Concomitant]

REACTIONS (45)
  - ANAEMIA [None]
  - APHASIA [None]
  - BEDRIDDEN [None]
  - BLOOD CALCIUM DECREASED [None]
  - BLOOD GLUCOSE INCREASED [None]
  - BLOOD PRESSURE DIASTOLIC DECREASED [None]
  - BLOOD SODIUM INCREASED [None]
  - BODY TEMPERATURE INCREASED [None]
  - BRAIN NATRIURETIC PEPTIDE INCREASED [None]
  - BUNDLE BRANCH BLOCK LEFT [None]
  - CARDIAC FAILURE CONGESTIVE [None]
  - CARDIAC MURMUR [None]
  - COMA [None]
  - CONDITION AGGRAVATED [None]
  - DEHYDRATION [None]
  - DELIRIUM [None]
  - DEPRESSED LEVEL OF CONSCIOUSNESS [None]
  - DEPRESSION [None]
  - DIASTOLIC DYSFUNCTION [None]
  - ELECTROCARDIOGRAM ABNORMAL [None]
  - ELECTROCARDIOGRAM POOR R-WAVE PROGRESSION [None]
  - ENCEPHALOPATHY [None]
  - FACIAL PALSY [None]
  - FALL [None]
  - FOREARM FRACTURE [None]
  - HALLUCINATION [None]
  - HYPERLIPIDAEMIA [None]
  - HYPERTENSION [None]
  - HYPOREFLEXIA [None]
  - HYPOTONIA [None]
  - MITRAL VALVE INCOMPETENCE [None]
  - MUSCLE RIGIDITY [None]
  - PERONEAL NERVE PALSY [None]
  - PNEUMONIA ASPIRATION [None]
  - POSTURE ABNORMAL [None]
  - PULMONARY CONGESTION [None]
  - PUPILLARY REFLEX IMPAIRED [None]
  - RALES [None]
  - RENAL FAILURE [None]
  - SINUS TACHYCARDIA [None]
  - SKIN LACERATION [None]
  - SOMNOLENCE [None]
  - SUBDURAL HAEMATOMA [None]
  - TREMOR [None]
  - VENTRICULAR HYPERTROPHY [None]
